FAERS Safety Report 10247292 (Version 1)
Quarter: 2014Q2

REPORT INFORMATION
  Report Type: Spontaneous
  Country: IT (occurrence: IT)
  Receive Date: 20140619
  Receipt Date: 20140619
  Transmission Date: 20141212
  Serious: Yes (Hospitalization)
  Sender: FDA-Public Use
  Company Number: IT-GLAXOSMITHKLINE-B1005292A

PATIENT
  Age: 61 Year
  Sex: Male

DRUGS (7)
  1. ZEFFIX [Suspect]
     Indication: DRUG ABUSE
     Dosage: 140MG PER DAY
     Route: 048
     Dates: start: 20140423
  2. VASORETIC [Suspect]
     Indication: DRUG ABUSE
     Dosage: 227.5MG PER DAY
     Route: 048
     Dates: start: 20140423
  3. DENIBAN [Suspect]
     Indication: DRUG ABUSE
     Dosage: 500MG PER DAY
     Route: 048
  4. METFORMIN [Suspect]
     Indication: DRUG ABUSE
     Dosage: 3500MG PER DAY
     Dates: start: 20140423
  5. LANSOPRAZOLE [Suspect]
     Indication: DRUG ABUSE
     Dosage: 105MG PER DAY
     Route: 048
     Dates: start: 20140423
  6. SIMVASTATIN [Suspect]
     Indication: DRUG ABUSE
     Route: 048
     Dates: start: 20140423
  7. CITALOPRAM [Suspect]
     Indication: DRUG ABUSE
     Dosage: 280MG PER DAY
     Route: 048
     Dates: start: 20140423

REACTIONS (2)
  - Intentional overdose [Unknown]
  - Somnolence [Recovered/Resolved]
